FAERS Safety Report 6503458-7 (Version None)
Quarter: 2009Q4

REPORT INFORMATION
  Report Type: 
  Country: None (occurrence: None)
  Receive Date: 20091217
  Receipt Date: 20091210
  Transmission Date: 20100525
  Serious: Yes (Hospitalization)
  Sender: FDA-Public Use
  Company Number: FR-SANOFI-AVENTIS-2009SA007679

PATIENT
  Age: 80 Year
  Sex: Female

DRUGS (6)
  1. DI ANTALVIC [Interacting]
     Indication: HEADACHE
     Dates: start: 20080831, end: 20080901
  2. STILNOX [Suspect]
     Route: 048
  3. ATENOLOL [Concomitant]
  4. ZESTORETIC [Concomitant]
  5. PREVISCAN [Concomitant]
  6. DOLIPRANE [Concomitant]
     Indication: HEADACHE
     Dates: start: 20080831, end: 20080901

REACTIONS (3)
  - DRUG INTERACTION [None]
  - HALLUCINATION, VISUAL [None]
  - XANTHOPSIA [None]
